FAERS Safety Report 7753195-6 (Version None)
Quarter: 2011Q3

REPORT INFORMATION
  Report Type: 
  Country: None (occurrence: None)
  Receive Date: 20110915
  Receipt Date: 20110912
  Transmission Date: 20111222
  Serious: Yes (Other)
  Sender: FDA-Public Use
  Company Number: PHHY2011FR66303

PATIENT
  Sex: Female
  Weight: 51 kg

DRUGS (1)
  1. EXTAVIA [Suspect]
     Indication: MULTIPLE SCLEROSIS
     Dosage: 1 ML, QOD
     Route: 058
     Dates: start: 20110501, end: 20110626

REACTIONS (5)
  - OCULAR ICTERUS [None]
  - HEPATITIS [None]
  - CHROMATURIA [None]
  - JAUNDICE [None]
  - FATIGUE [None]
